FAERS Safety Report 10462304 (Version 2)
Quarter: 2014Q3

REPORT INFORMATION
  Report Type: Report from Study
  Country: CA (occurrence: CA)
  Receive Date: 20140918
  Receipt Date: 20140918
  Transmission Date: 20150326
  Serious: Yes (Other)
  Sender: FDA-Public Use
  Company Number: CA-BRISTOL-MYERS SQUIBB COMPANY-20510400

PATIENT
  Age: 72 Year
  Sex: Female

DRUGS (12)
  1. GABAPENTIN. [Concomitant]
     Active Substance: GABAPENTIN
  2. METHOTREXATE [Concomitant]
     Active Substance: METHOTREXATE
  3. RABEPRAZOLE [Concomitant]
     Active Substance: RABEPRAZOLE
  4. INDAPAMIDE. [Concomitant]
     Active Substance: INDAPAMIDE
  5. NAPROXEN. [Concomitant]
     Active Substance: NAPROXEN
  6. ORENCIA [Suspect]
     Active Substance: ABATACEPT
     Indication: RHEUMATOID ARTHRITIS
     Dosage: 1DF=1000 UNITS NOS
     Route: 042
     Dates: start: 20090623
  7. SULFASALAZINE. [Concomitant]
     Active Substance: SULFASALAZINE
  8. SPIRIVA [Concomitant]
     Active Substance: TIOTROPIUM BROMIDE MONOHYDRATE
  9. TOLTERODINE [Concomitant]
     Active Substance: TOLTERODINE
  10. DOMPERIDONE [Concomitant]
     Active Substance: DOMPERIDONE
  11. PREDNISONE. [Concomitant]
     Active Substance: PREDNISONE
  12. FOLIC ACID. [Concomitant]
     Active Substance: FOLIC ACID

REACTIONS (2)
  - Bladder disorder [Unknown]
  - Urinary incontinence [Not Recovered/Not Resolved]
